FAERS Safety Report 10494095 (Version 2)
Quarter: 2014Q4

REPORT INFORMATION
  Report Type: Report from Study
  Country: KE (occurrence: KE)
  Receive Date: 20141003
  Receipt Date: 20141017
  Transmission Date: 20150528
  Serious: Yes (Death, Hospitalization)
  Sender: FDA-Public Use
  Company Number: KE-BRISTOL-MYERS SQUIBB COMPANY-21434980

PATIENT
  Age: 30 Year
  Sex: Male

DRUGS (9)
  1. TENOFOVIR [Suspect]
     Active Substance: TENOFOVIR
     Indication: HIV INFECTION
     Dates: start: 20140910, end: 20140927
  2. COTRIMOXAZOLE [Suspect]
     Active Substance: SULFAMETHOXAZOLE\TRIMETHOPRIM
     Dates: start: 20140905, end: 20140927
  3. ISONIAZID. [Suspect]
     Active Substance: ISONIAZID
     Dates: start: 20140202, end: 20140927
  4. FLUCONAZOLE. [Suspect]
     Active Substance: FLUCONAZOLE
     Dates: start: 20140910, end: 20140927
  5. GRISEOFULVIN. [Suspect]
     Active Substance: GRISEOFULVIN
     Dates: start: 20140905, end: 20140917
  6. EMTRICITABINE [Suspect]
     Active Substance: EMTRICITABINE
     Indication: HIV INFECTION
     Dates: start: 20140910, end: 20140927
  7. RALTEGRAVIR [Suspect]
     Active Substance: RALTEGRAVIR
     Indication: HIV INFECTION
     Dates: start: 20140910, end: 20140927
  8. PYRIDOXINE [Suspect]
     Active Substance: PYRIDOXINE
     Dates: start: 20140910, end: 20140927
  9. EFAVIRENZ [Suspect]
     Active Substance: EFAVIRENZ
     Indication: HIV INFECTION
     Dates: start: 20140910, end: 20140927

REACTIONS (6)
  - Cerebellar infarction [Not Recovered/Not Resolved]
  - Cerebral toxoplasmosis [Not Recovered/Not Resolved]
  - Meningitis [Not Recovered/Not Resolved]
  - Diarrhoea [Recovered/Resolved]
  - Oral candidiasis [Recovered/Resolved]
  - Death [Fatal]

NARRATIVE: CASE EVENT DATE: 20140913
